FAERS Safety Report 9739237 (Version 1)
Quarter: 2013Q4

REPORT INFORMATION
  Report Type: Spontaneous
  Country: PL (occurrence: PL)
  Receive Date: 20131209
  Receipt Date: 20131209
  Transmission Date: 20140711
  Serious: Yes (Other)
  Sender: FDA-Public Use
  Company Number: PL-PFIZER INC-2013343838

PATIENT
  Age: 63 Year
  Sex: Female

DRUGS (8)
  1. SOLU-MEDROL [Suspect]
     Indication: UVEITIS
     Dosage: 3.0 G, UNK
     Route: 042
  2. METYPRED [Suspect]
     Indication: UVEITIS
     Dosage: 40 MG, UNK
     Route: 048
  3. METYPRED [Suspect]
     Dosage: 16 MG, UNK
     Route: 048
  4. BIOFUROKSYM [Concomitant]
     Indication: UVEITIS
     Dosage: 700 MG, 2X/DAY FOR 7 DAYS
     Route: 042
  5. DEPO MEDROL [Concomitant]
     Indication: UVEITIS
     Dosage: PERIBULAR
  6. DEXAMETHASONE [Concomitant]
     Indication: UVEITIS
  7. NACLOF [Concomitant]
     Indication: UVEITIS
  8. TROPICAMIDE [Concomitant]
     Indication: UVEITIS
     Dosage: 1 %, UNK

REACTIONS (3)
  - Spinal compression fracture [Unknown]
  - Type 2 diabetes mellitus [Unknown]
  - Osteoporosis [Unknown]
